FAERS Safety Report 7269838-X (Version None)
Quarter: 2011Q1

REPORT INFORMATION
  Report Type: 
  Country: None (occurrence: None)
  Receive Date: 20110125
  Receipt Date: 20110125
  Transmission Date: 20110831
  Serious: Yes (Hospitalization)
  Sender: FDA-Public Use
  Company Number: None

PATIENT
  Sex: Female
  Weight: 10.2 kg

DRUGS (3)
  1. CARBOPLATIN [Suspect]
     Dosage: 185 MG
  2. DOXORUBICIN HYDROCHLORIDE [Suspect]
     Dosage: 10 MG
  3. CYCLOPHOSPHAMIDE [Suspect]
     Dosage: 330 MG

REACTIONS (6)
  - ENTEROBACTER INFECTION [None]
  - LIVEDO RETICULARIS [None]
  - LETHARGY [None]
  - TACHYCARDIA [None]
  - SEPSIS [None]
  - CYANOSIS [None]
